FAERS Safety Report 5775600-7 (Version None)
Quarter: 2008Q2

REPORT INFORMATION
  Report Type: 
  Country: None (occurrence: None)
  Receive Date: 20080617
  Receipt Date: 20080609
  Transmission Date: 20081010
  Serious: Yes (Other)
  Sender: FDA-Public Use
  Company Number: US-PFIZER INC-2008048819

PATIENT
  Sex: Male
  Weight: 81.818 kg

DRUGS (6)
  1. DETROL LA [Suspect]
     Indication: POLLAKIURIA
  2. DETROL LA [Suspect]
     Indication: NOCTURIA
  3. DETROL LA [Suspect]
     Indication: MICTURITION URGENCY
  4. LIPITOR [Concomitant]
  5. COZAAR [Concomitant]
  6. MICROZIDE [Concomitant]

REACTIONS (3)
  - BLADDER DISORDER [None]
  - BLADDER OPERATION [None]
  - DRUG INEFFECTIVE [None]
